FAERS Safety Report 7580098-2 (Version None)
Quarter: 2011Q2

REPORT INFORMATION
  Report Type: 
  Country: None (occurrence: None)
  Receive Date: 20110629
  Receipt Date: 20110620
  Transmission Date: 20111010
  Serious: Yes (Death)
  Sender: FDA-Public Use
  Company Number: US-ELI_LILLY_AND_COMPANY-US201106007642

PATIENT
  Sex: Female

DRUGS (8)
  1. NITROGLYCERIN [Concomitant]
  2. ZYPREXA [Suspect]
     Indication: FEELING OF RELAXATION
     Dosage: 5 MG, QD
     Dates: start: 20010717
  3. NITROFURANTOIN [Concomitant]
  4. FUROSEMIDE [Concomitant]
  5. LORAZEPAM [Concomitant]
  6. TRAZODONE HCL [Concomitant]
  7. DILTIAZEM [Concomitant]
  8. POTASSIUM CHLORIDE [Concomitant]

REACTIONS (3)
  - RESPIRATORY FAILURE [None]
  - OFF LABEL USE [None]
  - CEREBROVASCULAR ACCIDENT [None]
